FAERS Safety Report 7340665-8 (Version None)
Quarter: 2011Q1

REPORT INFORMATION
  Report Type: 
  Country: None (occurrence: None)
  Receive Date: 20110309
  Receipt Date: 20110302
  Transmission Date: 20110831
  Serious: Yes (Other)
  Sender: FDA-Public Use
  Company Number: GB-ROCHE-759546

PATIENT
  Sex: Male
  Weight: 88.8 kg

DRUGS (7)
  1. CAPECITABINE [Suspect]
     Indication: COLORECTAL CANCER
     Dosage: DATE OF MOST RECENT DOSE GIVEN: 28 OCT 2010.  DOSE REDUCTION:25 %. CURRENT CYCLE NUMBER: COMPLETED.
     Route: 048
     Dates: start: 20100430
  2. OMEPRAZOLE [Concomitant]
     Indication: ANTACID THERAPY
     Route: 048
     Dates: start: 20101021
  3. PREDNISOLONE [Concomitant]
     Dosage: REDUCING DOSE
     Route: 048
     Dates: start: 20101027
  4. NAPROXEN [Concomitant]
     Route: 048
  5. BEVACIZUMAB [Suspect]
     Indication: COLORECTAL CANCER
     Dosage: DATE OF MOST RECENT DOSE GIVEN: 08 OCT 2010.  CURRENT CYCLE NUMBER: COMPLETED.
     Route: 042
     Dates: start: 20100430
  6. CO CODAMOL [Concomitant]
     Route: 048
  7. TRAMADOL HCL [Concomitant]
     Route: 048
     Dates: start: 20100124

REACTIONS (1)
  - OEDEMA PERIPHERAL [None]
